FAERS Safety Report 9251386 (Version 1)
Quarter: 2013Q2

REPORT INFORMATION
  Report Type: Spontaneous
  Country: US (occurrence: US)
  Receive Date: 20130424
  Receipt Date: 20130424
  Transmission Date: 20140414
  Serious: Yes (Hospitalization, Other)
  Sender: FDA-Public Use
  Company Number: US-PFIZER INC-2013125288

PATIENT
  Age: 72 Year
  Sex: Male
  Weight: 92.97 kg

DRUGS (10)
  1. LYRICA [Suspect]
     Indication: NERVE INJURY
     Dosage: 50 MG, 3X/DAY
     Dates: start: 2011, end: 2011
  2. LYRICA [Suspect]
     Indication: PAIN
     Dosage: UNK
     Dates: start: 2011, end: 201211
  3. LYRICA [Suspect]
     Indication: BURNING SENSATION
  4. AMLODIPINE [Concomitant]
     Indication: BLOOD PRESSURE ABNORMAL
     Dosage: 5 MG, 1X/DAY
  5. BUPROPION [Concomitant]
     Indication: DEPRESSION
     Dosage: 300 MG, 1X/DAY
  6. CARAFATE [Concomitant]
     Indication: GASTROOESOPHAGEAL REFLUX DISEASE
     Dosage: UNK, 2X/DAY
  7. CHLORTHALIDONE [Concomitant]
     Indication: BLOOD PRESSURE ABNORMAL
     Dosage: 25 MG, 1X/DAY
  8. CLONAZEPAM [Concomitant]
     Indication: ANXIETY
     Dosage: 1 MG, 1X/DAY
  9. DEXILANT [Concomitant]
     Indication: GASTROOESOPHAGEAL REFLUX DISEASE
     Dosage: 60 MG, 1X/DAY
  10. COLCRYS [Concomitant]
     Dosage: 0.6 MG, 2X/DAY

REACTIONS (4)
  - Malaise [Recovering/Resolving]
  - Wheelchair user [Recovering/Resolving]
  - Weight increased [Unknown]
  - Intentional drug misuse [Unknown]
